FAERS Safety Report 8808709 (Version 2)
Quarter: 2013Q1

REPORT INFORMATION
  Report Type: Spontaneous
  Country: DK (occurrence: None)
  Receive Date: 20120921
  Receipt Date: 20121009
  Transmission Date: 20140127
  Serious: Yes (Life-Threatening, Hospitalization, Other)
  Sender: FDA-Public Use
  Company Number: AUR-APL-2012-04038

PATIENT
  Age: 62 Year
  Sex: Male

DRUGS (4)
  1. METFORMIN (METFORMIN) [Suspect]
     Indication: TYPE 2 DIABETES MELLITUS
  2. GLIMEPIRIDE (GLIMEPIRIDE) [Concomitant]
  3. LOSARTAN (LOSARTAN) [Concomitant]
  4. ACETAMINOPHEN (PARACETAMOL) [Concomitant]

REACTIONS (17)
  - Lactic acidosis [None]
  - Dyspnoea [None]
  - Nausea [None]
  - Vomiting [None]
  - Abdominal pain [None]
  - Disorientation [None]
  - Confusional state [None]
  - Kussmaul respiration [None]
  - Respiratory arrest [None]
  - Bradycardia [None]
  - Cardiac arrest [None]
  - Hyperglycaemia [None]
  - Blood glucose increased [None]
  - Hyperkalaemia [None]
  - Haemodialysis [None]
  - Oliguria [None]
  - Renal failure acute [None]
